FAERS Safety Report 4736331-5 (Version None)
Quarter: 2005Q3

REPORT INFORMATION
  Report Type: 
  Country: None (occurrence: None)
  Receive Date: 20050808
  Receipt Date: 20050729
  Transmission Date: 20060218
  Serious: Yes (Hospitalization)
  Sender: FDA-Public Use
  Company Number: US-SOLVAY-00205002433

PATIENT
  Sex: Male
  Weight: 102 kg

DRUGS (10)
  1. AVALIDE [Concomitant]
     Indication: BLOOD PRESSURE INCREASED
     Dosage: DAILY DOSE: 12.5 MILLIGRAM(S)
     Route: 048
  2. ANDROGEL [Suspect]
     Indication: BLOOD TESTOSTERONE DECREASED
     Dosage: DAILY DOSE: 5 GRAM(S)
     Route: 062
     Dates: start: 20020101, end: 20030101
  3. ANDROGEL [Suspect]
     Dosage: DAILY DOSE: 5 GRAM(S)
     Route: 062
  4. ANDROGEL [Suspect]
     Dosage: DAILY DOSE: 5 GRAM(S)
     Route: 062
     Dates: start: 20040901
  5. LIPITOR [Concomitant]
     Indication: BLOOD CHOLESTEROL INCREASED
     Dosage: DAILY DOSE: 40 MILLIGRAM(S)
     Route: 048
  6. KLOR-CON [Concomitant]
     Indication: SUBSTITUTION THERAPY
     Dosage: DAILY DOSE: 10 MILLIEQUIVALENT(S)
     Route: 048
  7. ATENOLOL [Concomitant]
     Indication: BLOOD PRESSURE INCREASED
     Dosage: DAILY DOSE: 50 MILLIGRAM(S)
     Route: 048
  8. PLAVIX [Concomitant]
     Indication: ISCHAEMIC HEART DISEASE PROPHYLAXIS
     Dosage: DAILY DOSE: 75 MILLIGRAM(S)
     Route: 048
     Dates: start: 20050101
  9. MOBIC [Concomitant]
     Indication: ARTHRITIS
     Dosage: DAILY DOSE: 7.5 MILLIGRAM(S)
     Route: 048
     Dates: start: 20050401
  10. ASPIRIN [Concomitant]
     Indication: ISCHAEMIC HEART DISEASE PROPHYLAXIS
     Dosage: DAILY DOSE: 325 MILLIGRAM(S)
     Route: 048

REACTIONS (3)
  - ALOPECIA [None]
  - CORONARY ARTERY OCCLUSION [None]
  - HYPOTRICHOSIS [None]
